FAERS Safety Report 5026607-9 (Version None)
Quarter: 2006Q2

REPORT INFORMATION
  Report Type: 
  Country: None (occurrence: None)
  Receive Date: 20060613
  Receipt Date: 20060613
  Transmission Date: 20061013
  Serious: Yes (Life-Threatening, Other)
  Sender: FDA-Public Use
  Company Number: None

PATIENT
  Sex: Male
  Weight: 120.2032 kg

DRUGS (2)
  1. CYMBALTA [Suspect]
     Indication: BACK INJURY
     Dosage: 30 MG , HS 1X/DAY PO
     Route: 048
     Dates: start: 20060525
  2. CYMBALTA [Suspect]
     Indication: PAIN IN EXTREMITY
     Dosage: 30 MG , HS 1X/DAY PO
     Route: 048
     Dates: start: 20060525

REACTIONS (2)
  - BUNDLE BRANCH BLOCK [None]
  - CHEST DISCOMFORT [None]
